FAERS Safety Report 8990442 (Version 2)
Quarter: 2013Q1

REPORT INFORMATION
  Report Type: Spontaneous
  Country: US (occurrence: US)
  Receive Date: 20121228
  Receipt Date: 20130207
  Transmission Date: 20140127
  Serious: Yes (Hospitalization)
  Sender: FDA-Public Use
  Company Number: US-B.I. PHARMACEUTICALS,INC./RIDGEFIELD-2012-BI-04076BP

PATIENT
  Age: 86 Year
  Sex: Male
  Weight: 79.83 kg

DRUGS (7)
  1. PRADAXA [Suspect]
     Indication: ATRIAL FIBRILLATION
     Dosage: 300 MG
     Route: 048
     Dates: start: 20110503, end: 20110516
  2. PRADAXA [Suspect]
     Indication: ANTICOAGULANT THERAPY
     Dosage: 300 MG
     Route: 048
     Dates: start: 2012
  3. SYNTHROID [Concomitant]
     Indication: HYPOTHYROIDISM
     Dosage: 25 MCG
  4. PRAVACHOL [Concomitant]
     Indication: HYPERCHOLESTEROLAEMIA
  5. LASIX [Concomitant]
     Indication: OEDEMA
  6. K DUR [Concomitant]
     Indication: ELECTROLYTE SUBSTITUTION THERAPY
  7. TOPROL XL [Concomitant]
     Indication: CORONARY ARTERY DISEASE

REACTIONS (3)
  - Polyp [Unknown]
  - Bladder cancer [Unknown]
  - Haematuria [Recovered/Resolved]
